FAERS Safety Report 8186835-0 (Version None)
Quarter: 2012Q1

REPORT INFORMATION
  Report Type: 
  Country: None (occurrence: None)
  Receive Date: 20120306
  Receipt Date: 20120222
  Transmission Date: 20120608
  Serious: Yes (Other)
  Sender: FDA-Public Use
  Company Number: -VALEANT-2012VX000953

PATIENT

DRUGS (6)
  1. FLUOROURACIL [Suspect]
     Dosage: DOSE UNIT:2400
     Route: 040
  2. FLUOROURACIL [Suspect]
     Route: 040
  3. LEUCOVORIN CALCIUM [Suspect]
     Dosage: DOSE UNIT:200
     Route: 042
  4. FLUOROURACIL [Suspect]
     Dosage: DOSE UNIT:400
     Route: 040
  5. OXALIPLATIN [Suspect]
     Dosage: DOSE UNIT:85
     Route: 042
  6. FLUOROURACIL [Suspect]
     Route: 042

REACTIONS (1)
  - NEUROTOXICITY [None]
